FAERS Safety Report 4307186-8 (Version None)
Quarter: 2004Q1

REPORT INFORMATION
  Report Type: 
  Country: None (occurrence: None)
  Receive Date: 20040225
  Receipt Date: 20040216
  Transmission Date: 20041129
  Serious: Yes (Hospitalization)
  Sender: FDA-Public Use
  Company Number: 2003-104507-NL

PATIENT
  Age: 76 Year
  Sex: Female

DRUGS (7)
  1. MIRTAZAPINE [Suspect]
     Dosage: 30 MG, ORAL
     Route: 048
     Dates: start: 20000622, end: 20030325
  2. PAROXETINE HCL [Suspect]
     Dosage: 30 MG OM, ORAL
     Route: 048
     Dates: start: 20030307, end: 20030325
  3. ACETYLSALICYLIC ACID SRT [Concomitant]
  4. PROPRANOLOL [Concomitant]
  5. OXYTETRACYCLINE [Concomitant]
  6. CEPHALEXIN [Concomitant]
  7. BENDROFLUAZIDE [Concomitant]

REACTIONS (2)
  - DEPRESSED LEVEL OF CONSCIOUSNESS [None]
  - INAPPROPRIATE ANTIDIURETIC HORMONE SECRETION [None]
